FAERS Safety Report 20541305 (Version 1)
Quarter: 2022Q1

REPORT INFORMATION
  Report Type: Spontaneous
  Country: FR (occurrence: FR)
  Receive Date: 20220302
  Receipt Date: 20220302
  Transmission Date: 20220423
  Serious: Yes (Hospitalization)
  Sender: FDA-Public Use
  Company Number: None

PATIENT
  Age: 95 Year
  Sex: Female
  Weight: 53 kg

DRUGS (4)
  1. ACETAMINOPHEN [Suspect]
     Active Substance: ACETAMINOPHEN
     Indication: Diverticulitis
     Dosage: 3 G, QD (3G/J)
     Route: 048
     Dates: start: 20220204, end: 20220221
  2. ONDANSETRON [Suspect]
     Active Substance: ONDANSETRON
     Indication: Diverticulitis
     Dosage: 16 MG, QD (4 MG TTES LES 6H)
     Route: 040
     Dates: start: 20220215, end: 20220221
  3. TRIMEBUTINE MALEATE [Suspect]
     Active Substance: TRIMEBUTINE MALEATE
     Indication: Diverticulitis
     Dosage: 300 MG, QD (300 MG/J)
     Route: 048
     Dates: start: 20220204, end: 20220221
  4. FLAGYL [Suspect]
     Active Substance: METRONIDAZOLE\METRONIDAZOLE HYDROCHLORIDE
     Indication: Diverticulitis
     Dosage: UNK (1 COMPRIME MATIN, MIDI ET SOIR)
     Route: 048
     Dates: start: 20220207, end: 20220217

REACTIONS (1)
  - Neutropenia [Not Recovered/Not Resolved]

NARRATIVE: CASE EVENT DATE: 20220217
